FAERS Safety Report 21043289 (Version 1)
Quarter: 2022Q3

REPORT INFORMATION
  Report Type: Spontaneous
  Country: US (occurrence: US)
  Receive Date: 20220705
  Receipt Date: 20220705
  Transmission Date: 20221027
  Serious: No
  Sender: FDA-Public Use
  Company Number: US-ELI_LILLY_AND_COMPANY-US202206010792

PATIENT
  Age: 56 Year
  Sex: Female

DRUGS (3)
  1. MOUNJARO [Suspect]
     Active Substance: TIRZEPATIDE
     Indication: Type 2 diabetes mellitus
     Dosage: 2.5 MG, UNKNOWN
     Route: 058
     Dates: start: 20220615
  2. TRESIBA [Concomitant]
     Active Substance: INSULIN DEGLUDEC
     Dosage: UNK UNK, UNKNOWN
     Route: 065
  3. FIASP [Concomitant]
     Active Substance: INSULIN ASPART
     Dosage: UNK UNK, UNKNOWN
     Route: 065

REACTIONS (1)
  - Injection site pain [Unknown]

NARRATIVE: CASE EVENT DATE: 20220615
